FAERS Safety Report 11871724 (Version 1)
Quarter: 2015Q4

REPORT INFORMATION
  Report Type: Report from Study
  Country: CH (occurrence: CH)
  Receive Date: 20151228
  Receipt Date: 20151228
  Transmission Date: 20160305
  Serious: Yes (Hospitalization)
  Sender: FDA-Public Use
  Company Number: CH-ABBVIE-15P-151-1514175-00

PATIENT
  Sex: Female

DRUGS (2)
  1. DUODOPA [Suspect]
     Active Substance: CARBIDOPA\LEVODOPA
     Dosage: MD: 6ML; CD DAY:  2.6ML/H; CD NIGHT: 2.0ML/H; ED: 2ML
     Route: 050
     Dates: start: 20151202
  2. DUODOPA [Suspect]
     Active Substance: CARBIDOPA\LEVODOPA
     Indication: PARKINSON^S DISEASE
     Dosage: MD: 6ML; CD DAY:  2.5ML/H; CD NIGHT: 2.5ML/H; ED: 4ML
     Route: 050
     Dates: start: 20150818

REACTIONS (2)
  - Freezing phenomenon [Unknown]
  - General physical health deterioration [Not Recovered/Not Resolved]
